FAERS Safety Report 26024046 (Version 1)
Quarter: 2025Q4

REPORT INFORMATION
  Report Type: Spontaneous
  Country: EU (occurrence: EU)
  Receive Date: 20251111
  Receipt Date: 20251111
  Transmission Date: 20260118
  Serious: Yes (Hospitalization, Other)
  Sender: Atnahs Healthcare
  Company Number: EU-ATNAHS-2025-PMNV-FR001641

PATIENT

DRUGS (6)
  1. DIAZEPAM [Suspect]
     Active Substance: DIAZEPAM
     Indication: Drug withdrawal syndrome
     Dosage: 30 MILLIGRAM, QD
     Route: 065
  2. PREGABALIN [Suspect]
     Active Substance: PREGABALIN
     Indication: Anxiolytic therapy
     Dosage: 900 MG/DAY UP TO 1200 MG/DAY
     Route: 048
  3. PREGABALIN [Suspect]
     Active Substance: PREGABALIN
     Indication: Euphoric mood
     Dosage: 700 MILLIGRAM, QD
     Route: 048
     Dates: start: 2020, end: 2021
  4. PREGABALIN [Suspect]
     Active Substance: PREGABALIN
     Dosage: 900 MG, DAILY
     Route: 048
  5. TOBACCO LEAF [Concomitant]
     Active Substance: TOBACCO LEAF
     Indication: Product used for unknown indication
     Dosage: UNK
     Route: 065
  6. CANNABIS SATIVA SUBSP. INDICA TOP [Concomitant]
     Active Substance: CANNABIS SATIVA SUBSP. INDICA TOP
     Indication: Product used for unknown indication
     Dosage: UNK
     Route: 065

REACTIONS (7)
  - Thinking abnormal [Unknown]
  - Anxiety [Unknown]
  - Aggression [Unknown]
  - Drug dependence [Unknown]
  - Intentional overdose [Unknown]
  - Drug withdrawal syndrome [Unknown]
  - Drug use disorder [Unknown]

NARRATIVE: CASE EVENT DATE: 20200101
